FAERS Safety Report 9337150 (Version 1)
Quarter: 2013Q2

REPORT INFORMATION
  Report Type: Spontaneous
  Country: US (occurrence: US)
  Receive Date: 20130607
  Receipt Date: 20130607
  Transmission Date: 20140414
  Serious: No
  Sender: FDA-Public Use
  Company Number: US-PFIZER INC-2013172597

PATIENT
  Age: 63 Year
  Sex: Male
  Weight: 83.9 kg

DRUGS (6)
  1. PRISTIQ [Suspect]
     Indication: DEPRESSION
     Dosage: 25 MG DAILY
     Route: 048
  2. PRISTIQ [Interacting]
     Dosage: UNK, DAILY
     Route: 048
  3. ASPIRIN [Interacting]
     Indication: CARDIAC DISORDER
     Dosage: 81 MG DAILY
  4. NORCO [Interacting]
     Indication: PAIN
     Dosage: 5/325 MG DAILY AT NIGHT
     Dates: start: 2013
  5. BENAZEPRIL [Concomitant]
     Indication: HYPERTENSION
     Dosage: 40 MG DAILY
  6. BYSTOLIC [Concomitant]
     Indication: HYPERTENSION
     Dosage: 5 MG DAILY

REACTIONS (8)
  - Drug interaction [Unknown]
  - Anaemia [Unknown]
  - Meniscus injury [Unknown]
  - Pain [Unknown]
  - Decreased appetite [Unknown]
  - Insomnia [Unknown]
  - Lethargy [Unknown]
  - Drug ineffective [Unknown]
